FAERS Safety Report 7530424-5 (Version None)
Quarter: 2011Q2

REPORT INFORMATION
  Report Type: 
  Country: None (occurrence: None)
  Receive Date: 20110607
  Receipt Date: 20110523
  Transmission Date: 20111010
  Serious: Yes (Other)
  Sender: FDA-Public Use
  Company Number: US-BAYER-201026843NA

PATIENT
  Age: 48 Year
  Sex: Female
  Weight: 72.562 kg

DRUGS (9)
  1. YASMIN [Suspect]
     Indication: MENSTRUAL CYCLE MANAGEMENT
     Route: 048
     Dates: start: 20041201, end: 20080915
  2. TRIAMTERENE [Concomitant]
     Indication: HYPERTENSION
  3. DIAZIDE [Concomitant]
  4. DIETARY SUPPLEMENTS [Concomitant]
  5. LISINOPRIL [Concomitant]
     Indication: HYPERTENSION
  6. WELLBUTRIN [Concomitant]
     Indication: DEPRESSION
  7. NEXIUM [Concomitant]
  8. YAZ [Suspect]
     Indication: MENSTRUAL CYCLE MANAGEMENT
     Route: 048
     Dates: start: 20041201
  9. CENTRUM [Concomitant]

REACTIONS (8)
  - BACK PAIN [None]
  - ABDOMINAL PAIN UPPER [None]
  - CHOLELITHIASIS [None]
  - GALLBLADDER DISORDER [None]
  - GASTROOESOPHAGEAL REFLUX DISEASE [None]
  - VOMITING [None]
  - CHOLECYSTITIS CHRONIC [None]
  - GALLBLADDER CHOLESTEROLOSIS [None]
